FAERS Safety Report 7151204-9 (Version None)
Quarter: 2010Q4

REPORT INFORMATION
  Report Type: 
  Country: None (occurrence: None)
  Receive Date: 20101210
  Receipt Date: 20101203
  Transmission Date: 20110411
  Serious: Yes (Other)
  Sender: FDA-Public Use
  Company Number: US-JNJFOC-20100704626

PATIENT
  Sex: Male

DRUGS (3)
  1. LEVAQUIN [Suspect]
     Indication: RESPIRATORY TRACT INFECTION
     Route: 048
  2. LEVAQUIN [Suspect]
     Indication: FOOD POISONING
     Route: 048
  3. LEVAQUIN [Suspect]
     Indication: GASTROINTESTINAL DISORDER
     Route: 048

REACTIONS (4)
  - ARTHRALGIA [None]
  - MENISCUS LESION [None]
  - TENDON RUPTURE [None]
  - TENDONITIS [None]
